FAERS Safety Report 25179882 (Version 2)
Quarter: 2025Q3

REPORT INFORMATION
  Report Type: Spontaneous
  Country: US (occurrence: US)
  Receive Date: 20250409
  Receipt Date: 20250916
  Transmission Date: 20251021
  Serious: No
  Sender: BAYER HEALTHCARE PHARMACEUTICALS INC.
  Company Number: US-BAYER-2025A048237

PATIENT
  Age: 14 Year
  Sex: Male

DRUGS (4)
  1. KOVALTRY [Suspect]
     Active Substance: ANTIHEMOPHILIC FACTOR, HUMAN RECOMBINANT
     Indication: Prophylaxis
     Dosage: KOVALTRY 542IU: INFUSE~ 1000 UNITS
  2. KOVALTRY [Suspect]
     Active Substance: ANTIHEMOPHILIC FACTOR, HUMAN RECOMBINANT
     Indication: Prophylaxis
     Route: 042
  3. KOVALTRY [Suspect]
     Active Substance: ANTIHEMOPHILIC FACTOR, HUMAN RECOMBINANT
     Indication: Prophylaxis
     Route: 042
     Dates: start: 20250820
  4. KOVALTRY [Suspect]
     Active Substance: ANTIHEMOPHILIC FACTOR, HUMAN RECOMBINANT
     Indication: Prophylaxis
     Dosage: KOVALTRY 538 IU~ INFUSED:1000 UN, INFUSE 1000 UNITS (+/- 10%) 3 TIMES A WEEKITS
     Route: 042

REACTIONS (3)
  - Product dose omission issue [None]
  - Limb injury [None]
  - Product dose omission issue [None]

NARRATIVE: CASE EVENT DATE: 20250820
